FAERS Safety Report 24143871 (Version 2)
Quarter: 2024Q3

REPORT INFORMATION
  Report Type: Spontaneous
  Country: US (occurrence: US)
  Receive Date: 20240727
  Receipt Date: 20240802
  Transmission Date: 20241016
  Serious: No
  Sender: SANOFI AVENTIS
  Company Number: US-SANOFI-02145531

PATIENT
  Age: 71 Year
  Sex: Female

DRUGS (2)
  1. DUPIXENT [Suspect]
     Active Substance: DUPILUMAB
     Indication: Psoriasis
     Dosage: 2 DF, 1X
     Dates: start: 202407, end: 202407
  2. DUPIXENT [Suspect]
     Active Substance: DUPILUMAB
     Indication: Dermatitis atopic
     Dosage: INJECTED BOTH VIALS OF DUPIXENT
     Route: 058
     Dates: start: 20240719

REACTIONS (5)
  - Confusional state [Recovering/Resolving]
  - Feeling jittery [Unknown]
  - Extra dose administered [Unknown]
  - Nervousness [Unknown]
  - Off label use [Unknown]

NARRATIVE: CASE EVENT DATE: 20240701
